FAERS Safety Report 8723016 (Version 2)
Quarter: 2012Q4

REPORT INFORMATION
  Report Type: 
  Country: US (occurrence: US)
  Receive Date: 20120814
  Receipt Date: 20120904
  Transmission Date: 20130627
  Serious: No
  Sender: FDA-Public Use
  Company Number: US-JNJFOC-20120803891

PATIENT
  Sex: Female

DRUGS (4)
  1. BENADRYL ALLERGY DYE-FREE [Suspect]
     Indication: THROAT IRRITATION
     Route: 048
     Dates: start: 20120801
  2. BENADRYL ALLERGY DYE-FREE [Suspect]
     Indication: RHINORRHOEA
     Route: 048
     Dates: start: 20120801
  3. BENADRYL ALLERGY DYE-FREE [Suspect]
     Indication: LACRIMATION INCREASED
     Route: 048
     Dates: start: 20120801
  4. BENADRYL ALLERGY DYE-FREE [Suspect]
     Indication: UNEVALUABLE EVENT
     Route: 048
     Dates: start: 20120801

REACTIONS (2)
  - Diarrhoea [Not Recovered/Not Resolved]
  - Off label use [Unknown]
